FAERS Safety Report 6521584-3 (Version None)
Quarter: 2009Q4

REPORT INFORMATION
  Report Type: 
  Country: None (occurrence: None)
  Receive Date: 20091230
  Receipt Date: 20091216
  Transmission Date: 20100525
  Serious: Yes (Hospitalization)
  Sender: FDA-Public Use
  Company Number: PHHY2009JP53343

PATIENT
  Age: 71 Year
  Sex: Male
  Weight: 65 kg

DRUGS (5)
  1. GLEEVEC [Suspect]
     Indication: CHRONIC MYELOID LEUKAEMIA
     Dosage: 600 MG/DAY
     Route: 048
     Dates: start: 20040707
  2. GLEEVEC [Suspect]
     Dosage: 100 MG AND 200 MG
     Route: 048
     Dates: start: 20050404, end: 20050404
  3. GLEEVEC [Suspect]
     Dosage: 200 MG/DAY
     Route: 048
     Dates: start: 20080526, end: 20080818
  4. GLEEVEC [Suspect]
     Dosage: 100 MG/DAY
     Dates: start: 20081017
  5. INTERFERON ALFA [Concomitant]
     Indication: CHRONIC MYELOID LEUKAEMIA
     Dosage: 300 MIU/ DAY 5 DAYS A WEEK
     Route: 030
     Dates: start: 20080825

REACTIONS (15)
  - ABASIA [None]
  - ANAEMIA [None]
  - BLAST CRISIS IN MYELOGENOUS LEUKAEMIA [None]
  - BONE DISORDER [None]
  - BONE GRAFT [None]
  - BONE LESION [None]
  - BONE LESION EXCISION [None]
  - BONE PAIN [None]
  - MYELOFIBROSIS [None]
  - NAUSEA [None]
  - OEDEMA [None]
  - PANCYTOPENIA [None]
  - PLATELET COUNT INCREASED [None]
  - RASH [None]
  - RED BLOOD CELL COUNT DECREASED [None]
